FAERS Safety Report 8801427 (Version 5)
Quarter: 2013Q2

REPORT INFORMATION
  Report Type: Report from Study
  Country: CA (occurrence: CA)
  Receive Date: 20120921
  Receipt Date: 20130417
  Transmission Date: 20140414
  Serious: Yes (Death, Hospitalization, Other)
  Sender: FDA-Public Use
  Company Number: CA-ROCHE-659870

PATIENT
  Age: 60 Year
  Sex: Female
  Weight: 61.3 kg

DRUGS (24)
  1. RITUXIMAB [Suspect]
     Indication: RHEUMATOID ARTHRITIS
     Dosage: FORM: INFUSION
     Route: 065
  2. RITUXIMAB [Suspect]
     Dosage: FORM: INJECTION
     Route: 065
  3. ACTEMRA [Suspect]
     Indication: RHEUMATOID ARTHRITIS
     Dosage: RECENT DOSE TAKEN 23/AUG/2012
     Route: 042
     Dates: start: 20110223
  4. ACTEMRA [Suspect]
     Dosage: RECENT DOSE TAKEN 23/AUG/2012
     Route: 042
     Dates: start: 20110323, end: 20130304
  5. ACTEMRA [Suspect]
     Route: 042
     Dates: start: 20121129
  6. ALENDRONIC ACID [Concomitant]
     Dosage: DRUG: ALENDRONATE, EVERY MONDAY
     Route: 065
  7. ACETAMINOPHEN [Concomitant]
     Dosage: DOSE: 325 MG
     Route: 065
  8. CALCIUM CARBONATE [Concomitant]
  9. CITALOPRAM [Concomitant]
  10. VITAMIN B12 [Concomitant]
  11. DOCUSATE SODIUM [Concomitant]
  12. ENALAPRIL [Concomitant]
     Route: 065
  13. FERROUS GLUCONATE [Concomitant]
     Route: 065
  14. LEVOTHYROXINE [Concomitant]
  15. PREDNISONE [Concomitant]
  16. TRAZODONE [Concomitant]
     Dosage: TAKEN AT BEDTIME
     Route: 065
  17. AMLODIPINE [Concomitant]
  18. NORVASC [Concomitant]
     Route: 048
  19. RABEPRAZOLE [Concomitant]
  20. SYNTHROID [Concomitant]
  21. FOLIC ACID [Concomitant]
  22. CITALOPRAM [Concomitant]
  23. DURAGESIC [Concomitant]
  24. TRAZODONE [Concomitant]

REACTIONS (20)
  - Infection [Recovered/Resolved]
  - Hypersensitivity [Not Recovered/Not Resolved]
  - Anaphylactoid reaction [Unknown]
  - Pancytopenia [Not Recovered/Not Resolved]
  - Lymphopenia [Not Recovered/Not Resolved]
  - Pain [Unknown]
  - Pyrexia [Recovered/Resolved]
  - Oral candidiasis [Unknown]
  - Nausea [Unknown]
  - Dry skin [Unknown]
  - Fungal infection [Not Recovered/Not Resolved]
  - Body temperature increased [Unknown]
  - Infection [Unknown]
  - Oedema [Unknown]
  - Skin disorder [Unknown]
  - Emotional distress [Unknown]
  - Skin odour abnormal [Unknown]
  - Crying [Unknown]
  - Sepsis [Fatal]
  - Endocarditis [Fatal]
